FAERS Safety Report 6558139-0 (Version None)
Quarter: 2010Q1

REPORT INFORMATION
  Report Type: 
  Country: None (occurrence: None)
  Receive Date: 20100129
  Receipt Date: 20100121
  Transmission Date: 20100710
  Serious: Yes (Hospitalization)
  Sender: FDA-Public Use
  Company Number: B0628482A

PATIENT
  Sex: Female

DRUGS (2)
  1. LEUKERAN [Suspect]
     Indication: MANTLE CELL LYMPHOMA STAGE IV
     Dosage: 10MG PER DAY
     Route: 048
     Dates: start: 20090826, end: 20090904
  2. MABTHERA [Suspect]
     Indication: MANTLE CELL LYMPHOMA STAGE IV
     Route: 042
     Dates: start: 20090825, end: 20090825

REACTIONS (3)
  - ANAEMIA [None]
  - INTERSTITIAL LUNG DISEASE [None]
  - RESPIRATORY FAILURE [None]
